FAERS Safety Report 10892640 (Version 2)
Quarter: 2015Q2

REPORT INFORMATION
  Report Type: Report from Study
  Country: CA (occurrence: CA)
  Receive Date: 20150306
  Receipt Date: 20150430
  Transmission Date: 20150821
  Serious: Yes (Hospitalization, Other)
  Sender: FDA-Public Use
  Company Number: CA-AMGEN-CANSL2015019595

PATIENT
  Age: 71 Year
  Sex: Female

DRUGS (1)
  1. PROLIA [Suspect]
     Active Substance: DENOSUMAB
     Indication: OSTEOPOROSIS POSTMENOPAUSAL
     Dosage: 60 MG, Q6MO
     Route: 058
     Dates: start: 20131001

REACTIONS (8)
  - Sepsis [Recovering/Resolving]
  - Compression fracture [Unknown]
  - Mobility decreased [Recovering/Resolving]
  - Hiatus hernia [Recovering/Resolving]
  - Escherichia infection [Recovering/Resolving]
  - Malaise [Not Recovered/Not Resolved]
  - Pneumonia [Recovering/Resolving]
  - Feeding disorder [Recovering/Resolving]

NARRATIVE: CASE EVENT DATE: 20141218
